FAERS Safety Report 6939834-8 (Version None)
Quarter: 2010Q3

REPORT INFORMATION
  Report Type: 
  Country: None (occurrence: None)
  Receive Date: 20100825
  Receipt Date: 20100819
  Transmission Date: 20110219
  Serious: No
  Sender: FDA-Public Use
  Company Number: 2009BI042076

PATIENT
  Age: 47 Year
  Sex: Female

DRUGS (2)
  1. TYSABRI [Suspect]
     Indication: MULTIPLE SCLEROSIS
     Route: 042
     Dates: start: 20071120, end: 20081216
  2. TYSABRI [Suspect]
     Route: 042
     Dates: start: 20090630

REACTIONS (6)
  - ALTERED VISUAL DEPTH PERCEPTION [None]
  - CEREBRAL ATROPHY [None]
  - COORDINATION ABNORMAL [None]
  - FEAR OF NEEDLES [None]
  - MALAISE [None]
  - ROAD TRAFFIC ACCIDENT [None]
